FAERS Safety Report 8415748-1 (Version None)
Quarter: 2012Q2

REPORT INFORMATION
  Report Type: 
  Country: None (occurrence: None)
  Receive Date: 20120606
  Receipt Date: 20120529
  Transmission Date: 20120825
  Serious: Yes (Other)
  Sender: FDA-Public Use
  Company Number: JP-ASTELLAS-2012JP004669

PATIENT

DRUGS (3)
  1. ESTAZOLAM [Concomitant]
     Route: 048
  2. VESICARE [Suspect]
     Route: 048
  3. TOFRANIL [Concomitant]
     Route: 048

REACTIONS (1)
  - INTRAOCULAR PRESSURE INCREASED [None]
